FAERS Safety Report 21296118 (Version 2)
Quarter: 2023Q1

REPORT INFORMATION
  Report Type: Spontaneous
  Country: US (occurrence: US)
  Receive Date: 20220906
  Receipt Date: 20230116
  Transmission Date: 20230417
  Serious: No
  Sender: FDA-Public Use
  Company Number: US-BRISTOL-MYERS SQUIBB COMPANY-2022-101374

PATIENT
  Age: 59 Year
  Sex: Female

DRUGS (1)
  1. ORENCIA [Suspect]
     Active Substance: ABATACEPT
     Indication: Rheumatoid arthritis
     Dosage: ONGOING?LOT NUM: ACE0512; EXPIRY DATE: 31-MAR-2024
     Route: 058
     Dates: start: 202205

REACTIONS (2)
  - Joint swelling [Unknown]
  - Arthralgia [Unknown]
